FAERS Safety Report 18853284 (Version 1)
Quarter: 2021Q1

REPORT INFORMATION
  Report Type: Spontaneous
  Country: FR (occurrence: FR)
  Receive Date: 20210205
  Receipt Date: 20210205
  Transmission Date: 20210420
  Serious: Yes (Hospitalization, Other)
  Sender: FDA-Public Use
  Company Number: FR-ELI_LILLY_AND_COMPANY-FR202101002648

PATIENT
  Age: 27 Year
  Sex: Male
  Weight: 59.5 kg

DRUGS (3)
  1. ZYPADHERA [Suspect]
     Active Substance: OLANZAPINE PAMOATE
     Indication: SCHIZOPHRENIA
     Dosage: 300 MG, UNKNOWN
     Route: 030
     Dates: start: 201802
  2. ZYPADHERA [Suspect]
     Active Substance: OLANZAPINE PAMOATE
     Indication: SCHIZOPHRENIA
     Dosage: 300 MG, UNKNOWN
     Route: 030
     Dates: start: 201802
  3. ZYPADHERA [Suspect]
     Active Substance: OLANZAPINE PAMOATE
     Indication: SCHIZOPHRENIA
     Dosage: 300 MG, UNKNOWN
     Route: 030
     Dates: start: 201802

REACTIONS (11)
  - Injection related reaction [Recovered/Resolved]
  - Agitation [Recovered/Resolved]
  - Tachycardia [Unknown]
  - Extrapyramidal disorder [Recovered/Resolved]
  - Hypotension [Recovered/Resolved]
  - Blood pressure increased [Unknown]
  - Somnolence [Unknown]
  - Confusional state [Unknown]
  - Coma [Recovered/Resolved]
  - Dysarthria [Recovered/Resolved]
  - Agitation [Unknown]

NARRATIVE: CASE EVENT DATE: 20201223
